FAERS Safety Report 13043261 (Version 4)
Quarter: 2017Q1

REPORT INFORMATION
  Report Type: Report from Study
  Country: TR (occurrence: TR)
  Receive Date: 20161219
  Receipt Date: 20170307
  Transmission Date: 20170428
  Serious: Yes (Other)
  Sender: FDA-Public Use
  Company Number: TR-ROCHE-1869223

PATIENT

DRUGS (1)
  1. ALTEPLASE [Suspect]
     Active Substance: ALTEPLASE
     Indication: CEREBROVASCULAR ACCIDENT
     Dosage: 10% OF THE TREATMENT AS BOLUS AND THE REMAINING VIA INFUSION OVER ONE HOUR
     Route: 042

REACTIONS (1)
  - Hemianopia [Unknown]
